FAERS Safety Report 5480250-6 (Version None)
Quarter: 2007Q4

REPORT INFORMATION
  Report Type: 
  Country: None (occurrence: None)
  Receive Date: 20071003
  Receipt Date: 20070918
  Transmission Date: 20080405
  Serious: Yes (Hospitalization)
  Sender: FDA-Public Use
  Company Number: TNZUK200700099

PATIENT
  Age: 73 Year
  Sex: Female

DRUGS (1)
  1. INNOHEP [Suspect]
     Indication: THROMBOSIS PROPHYLAXIS
     Dosage: 3500 IU, ONCE DAILY, SUBCUTANEOUS
     Route: 058
     Dates: start: 20070911, end: 20070915

REACTIONS (3)
  - BLISTER [None]
  - POSTOPERATIVE WOUND COMPLICATION [None]
  - WOUND SECRETION [None]
